FAERS Safety Report 16000698 (Version 1)
Quarter: 2019Q1

REPORT INFORMATION
  Report Type: Spontaneous
  Country: US (occurrence: US)
  Receive Date: 20190225
  Receipt Date: 20190225
  Transmission Date: 20190418
  Serious: No
  Sender: FDA-Public Use
  Company Number: US-009507513-1902USA008601

PATIENT
  Age: 21 Year
  Sex: Male

DRUGS (1)
  1. ISENTRESS [Suspect]
     Active Substance: RALTEGRAVIR POTASSIUM
     Dosage: 4 TABLETS VIA PEG-TUBE TWICE DAILY

REACTIONS (3)
  - Incorrect route of product administration [Unknown]
  - No adverse event [Unknown]
  - Incorrect product dosage form administered [Unknown]
